FAERS Safety Report 4978396-1 (Version None)
Quarter: 2006Q2

REPORT INFORMATION
  Report Type: 
  Country: None (occurrence: None)
  Receive Date: 20060417
  Receipt Date: 20060331
  Transmission Date: 20061013
  Serious: Yes (Other)
  Sender: FDA-Public Use
  Company Number: GXKR2006CN01843

PATIENT
  Sex: Male

DRUGS (3)
  1. ASPIRIN [Suspect]
     Dosage: ORAL
     Route: 048
  2. DEXAMETHASONE [Suspect]
     Indication: MOUNTAIN SICKNESS ACUTE
  3. ETHANOL (ETHANOL) [Suspect]
     Dosage: ORAL
     Route: 048

REACTIONS (4)
  - ALCOHOL USE [None]
  - DRUG INTERACTION [None]
  - GASTROINTESTINAL HAEMORRHAGE [None]
  - MELAENA [None]
